FAERS Safety Report 4499629-4 (Version None)
Quarter: 2004Q4

REPORT INFORMATION
  Report Type: 
  Country: None (occurrence: None)
  Receive Date: 20041110
  Receipt Date: 20041110
  Transmission Date: 20050328
  Serious: No
  Sender: FDA-Public Use
  Company Number: None

PATIENT
  Age: 66 Year
  Sex: Female
  Weight: 154.223 kg

DRUGS (1)
  1. DIPHENHTDRAMINE 25 MG  PHARMACEUTICAL ASSOCIATES [Suspect]
     Indication: PRURITUS
     Dosage: 25 MG  EVERY 6 HOURS ORAL
     Route: 048
     Dates: start: 20040922, end: 20041011

REACTIONS (1)
  - HALLUCINATION [None]
